FAERS Safety Report 8775980 (Version 2)
Quarter: 2012Q4

REPORT INFORMATION
  Report Type: 
  Country: CA (occurrence: CA)
  Receive Date: 20120910
  Receipt Date: 20120910
  Transmission Date: 20130627
  Serious: Yes (Hospitalization, Other)
  Sender: FDA-Public Use
  Company Number: CA-BAXTER-2012BAX015094

PATIENT
  Age: 79 Year
  Sex: Female

DRUGS (4)
  1. DIANEAL-N PD-4 1.5 PD SOLUTION [Suspect]
     Indication: PERITONEAL DIALYSIS
     Route: 033
     Dates: start: 20100309
  2. DIANEAL PD4 LOW CALCIUM WITH 1.5% DEXTROSE [Suspect]
     Indication: PERITONEAL DIALYSIS
     Route: 033
     Dates: start: 20100309
  3. DIANEAL PD2 WITH 2.5% DEXTROSE [Suspect]
     Indication: PERITONEAL DIALYSIS
     Route: 033
     Dates: start: 20100309
  4. EXTRANEAL [Suspect]
     Indication: PERITONEAL DIALYSIS
     Route: 033
     Dates: start: 20100309

REACTIONS (6)
  - Memory impairment [Unknown]
  - Confusional state [Unknown]
  - Polyp [Unknown]
  - Gastrointestinal neoplasm [Not Recovered/Not Resolved]
  - Haemorrhage [Unknown]
  - Peritonitis [Unknown]
